FAERS Safety Report 5293879-5 (Version None)
Quarter: 2007Q2

REPORT INFORMATION
  Report Type: 
  Country: None (occurrence: None)
  Receive Date: 20070411
  Receipt Date: 20070405
  Transmission Date: 20071010
  Serious: Yes (Hospitalization)
  Sender: FDA-Public Use
  Company Number: JP-PFIZER INC-2007025643

PATIENT
  Age: 28 Year
  Sex: Female

DRUGS (1)
  1. SOLANAX [Suspect]
     Route: 048

REACTIONS (3)
  - INTENTIONAL OVERDOSE [None]
  - LOSS OF CONSCIOUSNESS [None]
  - SUICIDE ATTEMPT [None]
